FAERS Safety Report 17056395 (Version 3)
Quarter: 2020Q1

REPORT INFORMATION
  Report Type: Spontaneous
  Country: AT (occurrence: AT)
  Receive Date: 20191121
  Receipt Date: 20200103
  Transmission Date: 20200409
  Serious: No
  Sender: FDA-Public Use
  Company Number: AT-BEH-2019109576

PATIENT
  Age: 22 Year
  Sex: Female

DRUGS (3)
  1. HIZENTRA [Suspect]
     Active Substance: HUMAN IMMUNOGLOBULIN G
     Dosage: 20 MILLILITERS Q 5 DAYS (10 ML PER SITE)
     Route: 058
     Dates: start: 201911
  2. HIZENTRA [Suspect]
     Active Substance: HUMAN IMMUNOGLOBULIN G
     Dosage: 20 MILLILITER
     Route: 058
     Dates: start: 20191102, end: 20191102
  3. HIZENTRA [Suspect]
     Active Substance: HUMAN IMMUNOGLOBULIN G
     Indication: HUMORAL IMMUNE DEFECT
     Dosage: 20 MILLILITER Q 5 DAYS
     Route: 058
     Dates: start: 20190606, end: 20191111

REACTIONS (6)
  - Local reaction [Unknown]
  - Injection site pruritus [Not Recovered/Not Resolved]
  - Inflammation [Unknown]
  - Injection site swelling [Unknown]
  - Injection site erythema [Unknown]
  - Injection site pain [Recovered/Resolved]

NARRATIVE: CASE EVENT DATE: 20191103
